FAERS Safety Report 22059921 (Version 1)
Quarter: 2023Q1

REPORT INFORMATION
  Report Type: Spontaneous
  Country: US (occurrence: None)
  Receive Date: 20230303
  Receipt Date: 20230303
  Transmission Date: 20230417
  Serious: Yes (Other)
  Sender: FDA-Public Use
  Company Number: None

PATIENT
  Age: 77 Year
  Sex: Female

DRUGS (5)
  1. PROLIA [Suspect]
     Active Substance: DENOSUMAB
     Indication: Osteoporosis
     Dosage: 60 MG/ML  SUBCUTNOUS ??INJECT 60 MG UNDER THE SKIN (SUBCUTANEOUS INJECTION) EVERY 6 MONTHS
     Route: 058
     Dates: start: 20190503
  2. CELEBREX [Concomitant]
     Active Substance: CELECOXIB
  3. IRON TAB [Concomitant]
  4. VITAMIN B-12 TAB TR [Concomitant]
  5. VITAMIN D-3 TAB [Concomitant]

REACTIONS (1)
  - Thyroid operation [None]

NARRATIVE: CASE EVENT DATE: 20230223
